FAERS Safety Report 7736877-1 (Version None)
Quarter: 2011Q3

REPORT INFORMATION
  Report Type: 
  Country: None (occurrence: None)
  Receive Date: 20110908
  Receipt Date: 20110830
  Transmission Date: 20111222
  Serious: Yes (Other)
  Sender: FDA-Public Use
  Company Number: ES-PFIZER INC-2011190491

PATIENT
  Age: 27 Year
  Sex: Male

DRUGS (1)
  1. SULFASALAZINE [Suspect]
     Indication: PATELLOFEMORAL PAIN SYNDROME
     Dosage: UNK

REACTIONS (5)
  - HUMAN HERPESVIRUS 6 INFECTION [None]
  - ALOPECIA [None]
  - DRUG ERUPTION [None]
  - DRUG RASH WITH EOSINOPHILIA AND SYSTEMIC SYMPTOMS [None]
  - ANTIPHOSPHOLIPID SYNDROME [None]
